FAERS Safety Report 8847015 (Version 2)
Quarter: 2012Q4

REPORT INFORMATION
  Report Type: 
  Country: FR (occurrence: FR)
  Receive Date: 20121018
  Receipt Date: 20121029
  Transmission Date: 20130627
  Serious: Yes (Death, Life-Threatening)
  Sender: FDA-Public Use
  Company Number: FR-SANOFI-AVENTIS-2012SA074092

PATIENT
  Age: 74 Year
  Sex: Male

DRUGS (3)
  1. TAXOTERE [Suspect]
     Indication: CARCINOMA OF THE PROSTATE METASTATIC
     Dates: start: 20120911, end: 20120918
  2. METHYLPREDNISOLONE [Concomitant]
     Indication: CARCINOMA OF THE PROSTATE METASTATIC
     Dates: start: 20120911, end: 20120918
  3. ONDANSETRON [Concomitant]
     Indication: CARCINOMA OF THE PROSTATE METASTATIC
     Dates: start: 20120911, end: 20120918

REACTIONS (2)
  - Acute leukaemia [Fatal]
  - Leukaemia cutis [Fatal]
